FAERS Safety Report 25260859 (Version 1)
Quarter: 2025Q2

REPORT INFORMATION
  Report Type: Spontaneous
  Country: US (occurrence: US)
  Receive Date: 20250501
  Receipt Date: 20250501
  Transmission Date: 20250717
  Serious: Yes (Hospitalization, Other)
  Sender: NOVO NORDISK
  Company Number: US-NOVOPROD-1411483

PATIENT
  Age: 69 Year
  Sex: Male

DRUGS (2)
  1. SEMAGLUTIDE [Suspect]
     Active Substance: SEMAGLUTIDE
     Indication: Renal disorder
  2. SEMAGLUTIDE [Suspect]
     Active Substance: SEMAGLUTIDE
     Indication: Type 2 diabetes mellitus
     Dosage: 0.25 MG, QW

REACTIONS (8)
  - Fall [Unknown]
  - Craniofacial fracture [Unknown]
  - Orthostatic hypotension [Unknown]
  - Condition aggravated [Unknown]
  - Presyncope [Unknown]
  - Dizziness [Unknown]
  - Abnormal loss of weight [Unknown]
  - Heart rate increased [Unknown]
